FAERS Safety Report 23301360 (Version 1)
Quarter: 2023Q4

REPORT INFORMATION
  Report Type: Spontaneous
  Country: SE (occurrence: SE)
  Receive Date: 20231215
  Receipt Date: 20231215
  Transmission Date: 20240109
  Serious: Yes (Hospitalization)
  Sender: FDA-Public Use
  Company Number: SE-SANDOZ-SDZ2023SE067918

PATIENT
  Age: 37 Year
  Sex: Female

DRUGS (3)
  1. BRICANYL [Suspect]
     Active Substance: TERBUTALINE SULFATE
     Indication: Product used for unknown indication
     Dosage: 1 AMPULL
     Route: 065
     Dates: start: 20230803
  2. BUDESONIDE\FORMOTEROL [Suspect]
     Active Substance: BUDESONIDE\FORMOTEROL
     Indication: Product used for unknown indication
     Route: 065
     Dates: start: 20230803
  3. ACETAMINOPHEN [Suspect]
     Active Substance: ACETAMINOPHEN
     Indication: Product used for unknown indication
     Dosage: 10 TABLETTER
     Route: 065
     Dates: start: 20230803

REACTIONS (8)
  - Hypokalaemia [Recovering/Resolving]
  - Iron deficiency [Recovering/Resolving]
  - Sinus tachycardia [Recovering/Resolving]
  - Toxicity to various agents [Recovering/Resolving]
  - Folate deficiency [Recovering/Resolving]
  - Normocytic anaemia [Recovering/Resolving]
  - Suicidal ideation [Recovering/Resolving]
  - Vitamin B12 deficiency [Recovering/Resolving]

NARRATIVE: CASE EVENT DATE: 20230803
